FAERS Safety Report 7804273-4 (Version None)
Quarter: 2011Q4

REPORT INFORMATION
  Report Type: 
  Country: None (occurrence: None)
  Receive Date: 20111010
  Receipt Date: 20110929
  Transmission Date: 20120403
  Serious: Yes (Hospitalization, Other)
  Sender: FDA-Public Use
  Company Number: PHFR2011GB04442

PATIENT
  Sex: Female
  Weight: 78.65 kg

DRUGS (9)
  1. HYOSCINE HYDROBROMIDE [Concomitant]
     Indication: SALIVARY HYPERSECRETION
     Dosage: 300 UG/DAY
     Route: 048
     Dates: start: 20110601, end: 20110819
  2. FERROUS SULFATE TAB [Concomitant]
     Indication: ANAEMIA
     Dosage: 200 MG/DAY
     Route: 048
     Dates: start: 20110701, end: 20110913
  3. LACTULOSE [Concomitant]
     Indication: CONSTIPATION
     Dosage: 15 ML, BID
     Route: 048
  4. LORATADINE [Concomitant]
     Indication: SEASONAL ALLERGY
     Dosage: 10 MG, PRN
     Route: 048
     Dates: start: 20110701
  5. DIAZEPAM [Concomitant]
     Indication: AGITATION
     Dosage: 2 MG, PRN
     Route: 048
     Dates: start: 20110201
  6. SERTRALINE HYDROCHLORIDE [Concomitant]
     Indication: ANXIETY
     Dosage: 25 MG/DAY
     Route: 048
     Dates: start: 20110701, end: 20110912
  7. PROCHLORPERAZINE [Concomitant]
     Indication: NAUSEA
     Dosage: 5 MG, PRN
     Route: 048
     Dates: end: 20110728
  8. ZOPICLONE [Concomitant]
     Indication: INSOMNIA
     Dosage: 7.5 MG/DAY
     Route: 048
     Dates: start: 20110201, end: 20110819
  9. CLOZAPINE [Suspect]
     Indication: SCHIZOPHRENIA
     Dosage: 100 MG + 75 MG
     Route: 048
     Dates: start: 20110512, end: 20110822

REACTIONS (4)
  - TONSILLITIS [None]
  - ELECTROCARDIOGRAM PR SHORTENED [None]
  - HEART RATE INCREASED [None]
  - SINUS TACHYCARDIA [None]
